FAERS Safety Report 25569519 (Version 1)
Quarter: 2025Q3

REPORT INFORMATION
  Report Type: Report from Study
  Country: US (occurrence: US)
  Receive Date: 20250716
  Receipt Date: 20250716
  Transmission Date: 20251021
  Serious: Yes (Other)
  Sender: ABBVIE
  Company Number: US-ABBVIE-6243362

PATIENT
  Sex: Male

DRUGS (1)
  1. SKYRIZI [Suspect]
     Active Substance: RISANKIZUMAB-RZAA
     Indication: Psoriasis
     Route: 058
     Dates: start: 20240320

REACTIONS (6)
  - Skin disorder [Recovered/Resolved]
  - Anxiety [Recovering/Resolving]
  - General physical health deterioration [Recovered/Resolved]
  - Liver function test abnormal [Recovered/Resolved]
  - Weight decreased [Recovering/Resolving]
  - Vertigo [Unknown]
